FAERS Safety Report 11776562 (Version 6)
Quarter: 2016Q1

REPORT INFORMATION
  Report Type: Report from Study
  Country: DE (occurrence: DE)
  Receive Date: 20151125
  Receipt Date: 20160113
  Transmission Date: 20160525
  Serious: Yes (Hospitalization)
  Sender: FDA-Public Use
  Company Number: PHHO2015DE019576

PATIENT
  Age: 57 Year
  Sex: Male
  Weight: 83.8 kg

DRUGS (3)
  1. TACROLIMUS. [Suspect]
     Active Substance: TACROLIMUS
     Indication: RENAL TRANSPLANT
     Dosage: 5 MG, BID
     Route: 065
     Dates: start: 20150812
  2. PREDNISON [Suspect]
     Active Substance: PREDNISONE
     Indication: RENAL TRANSPLANT
     Dosage: 7.5 MG, UNK
     Route: 065
     Dates: start: 20150812
  3. CERTICAN [Suspect]
     Active Substance: EVEROLIMUS
     Indication: RENAL TRANSPLANT
     Dosage: 3.5 MG, BID
     Route: 048
     Dates: start: 20150812

REACTIONS (2)
  - Shunt aneurysm [Not Recovered/Not Resolved]
  - Kidney transplant rejection [Recovered/Resolved]

NARRATIVE: CASE EVENT DATE: 20151102
